FAERS Safety Report 11510382 (Version 1)
Quarter: 2015Q3

REPORT INFORMATION
  Report Type: Spontaneous
  Country: US (occurrence: US)
  Receive Date: 20150915
  Receipt Date: 20150915
  Transmission Date: 20151125
  Serious: No
  Sender: FDA-Public Use
  Company Number: US-JNJFOC-20150813080

PATIENT

DRUGS (9)
  1. ANCEF [Concomitant]
     Active Substance: CEFAZOLIN SODIUM
     Indication: STAPHYLOCOCCAL INFECTION
     Dosage: 30 DOSES
     Route: 065
     Dates: start: 20150805
  2. TYLENOL [Suspect]
     Active Substance: ACETAMINOPHEN
     Indication: PYREXIA
     Dosage: 1 DOSE
     Route: 065
     Dates: start: 20150803, end: 20150808
  3. HEPARIN [Concomitant]
     Active Substance: HEPARIN SODIUM
     Indication: THROMBOSIS
     Dosage: 580 UNITS/DAY
     Route: 042
  4. ROCEPHIN [Concomitant]
     Active Substance: CEFTRIAXONE SODIUM
     Indication: STAPHYLOCOCCAL INFECTION
     Dosage: 1 DOSE
     Route: 065
     Dates: start: 20150802, end: 20150802
  5. TYLENOL [Suspect]
     Active Substance: ACETAMINOPHEN
     Indication: STAPHYLOCOCCAL INFECTION
     Dosage: 1 DOSE
     Route: 065
     Dates: start: 20150803, end: 20150808
  6. VANCOMYCIN [Concomitant]
     Active Substance: VANCOMYCIN
     Indication: STAPHYLOCOCCAL INFECTION
     Dosage: 1 DOSE
     Route: 042
     Dates: start: 20150803, end: 20150805
  7. RANITIDINE [Concomitant]
     Active Substance: RANITIDINE\RANITIDINE HYDROCHLORIDE
     Indication: ANTACID THERAPY
     Route: 042
  8. IRON DEXTRAN [Concomitant]
     Active Substance: IRON DEXTRAN
     Indication: NUTRITIONAL SUPPLEMENTATION
     Route: 042
  9. BENADRYL [Suspect]
     Active Substance: DIPHENHYDRAMINE HYDROCHLORIDE
     Indication: PREMEDICATION
     Dosage: 1 DOSE
     Route: 065
     Dates: start: 20150803, end: 20150805

REACTIONS (1)
  - Product use issue [Unknown]
